FAERS Safety Report 7296929-X (Version None)
Quarter: 2011Q1

REPORT INFORMATION
  Report Type: 
  Country: None (occurrence: None)
  Receive Date: 20110216
  Receipt Date: 20110208
  Transmission Date: 20110831
  Serious: Yes (Death)
  Sender: FDA-Public Use
  Company Number: NO-JNJFOC-20110202407

PATIENT
  Sex: Male

DRUGS (5)
  1. REMICADE [Suspect]
     Indication: ANKYLOSING SPONDYLITIS
     Route: 042
  2. FOSAMAX [Concomitant]
     Indication: OSTEOPOROSIS
     Route: 048
  3. SIMVASTATIN [Concomitant]
     Indication: CORONARY ARTERY DISEASE
     Route: 048
  4. PLAVIX [Concomitant]
     Indication: CORONARY ARTERY DISEASE
     Route: 048
  5. CALCIGRAN FORTE [Concomitant]
     Indication: OSTEOPOROSIS
     Route: 048

REACTIONS (1)
  - MYOCARDIAL INFARCTION [None]
